FAERS Safety Report 15518177 (Version 1)
Quarter: 2018Q4

REPORT INFORMATION
  Report Type: Spontaneous
  Country: US (occurrence: US)
  Receive Date: 20181017
  Receipt Date: 20181017
  Transmission Date: 20190205
  Serious: Yes (Death, Other)
  Sender: FDA-Public Use
  Company Number: US-AMGEN-USASP2018142845

PATIENT
  Sex: Male

DRUGS (1)
  1. EPOETIN ALFA [Suspect]
     Active Substance: ERYTHROPOIETIN
     Indication: ANAEMIA
     Dosage: UNK
     Route: 065

REACTIONS (14)
  - Persistent left superior vena cava [Unknown]
  - Abdominal tenderness [Unknown]
  - Spinal disorder [Unknown]
  - Aortic disorder [Unknown]
  - Shock [Fatal]
  - Pneumatosis intestinalis [Unknown]
  - Gastric perforation [Unknown]
  - Pyloric stenosis [Unknown]
  - Respiratory disorder [Unknown]
  - Cerebral ventricle dilatation [Unknown]
  - Peritonitis [Unknown]
  - Gastrointestinal necrosis [Unknown]
  - Inferior vena caval occlusion [Unknown]
  - Off label use [Unknown]
